FAERS Safety Report 13504810 (Version 2)
Quarter: 2017Q3

REPORT INFORMATION
  Report Type: Spontaneous
  Country: US (occurrence: US)
  Receive Date: 20170502
  Receipt Date: 20170724
  Transmission Date: 20171127
  Serious: No
  Sender: FDA-Public Use
  Company Number: US-IMPAX LABORATORIES, INC-2017-IPXL-00319

PATIENT
  Age: 52 Year
  Sex: Male

DRUGS (1)
  1. RYTARY [Suspect]
     Active Substance: CARBIDOPA\LEVODOPA
     Indication: PRODUCT USED FOR UNKNOWN INDICATION
     Dosage: 48.75/195MG, 4 CAPSULES 5 TIMES DAILY
     Route: 065

REACTIONS (3)
  - General physical health deterioration [Unknown]
  - Prescribed overdose [Unknown]
  - Tooth extraction [Unknown]
